FAERS Safety Report 6169224-X (Version None)
Quarter: 2009Q2

REPORT INFORMATION
  Report Type: 
  Country: None (occurrence: None)
  Receive Date: 20090424
  Receipt Date: 20090410
  Transmission Date: 20091009
  Serious: Yes (Disabling)
  Sender: FDA-Public Use
  Company Number: APP200900211

PATIENT
  Age: 49 Year
  Sex: Female

DRUGS (8)
  1. MARCAINE [Suspect]
     Indication: MUSCULOSKELETAL PAIN
     Dosage: 300 ML, CONTINUOUS VIA PUMP, INTRA-ARTICULAR
     Route: 014
     Dates: start: 20021125
  2. MARCAINE WITH EPINEPHRINE (MARCAINE WITH EPINEPHRINE /00879801/) [Suspect]
     Indication: MUSCULOSKELETAL PAIN
     Dosage: 20 ML, INTRA-ARTICULAR 25 ML, WITH EPINEPHRINE 1:200,000
     Route: 014
     Dates: start: 20021125
  3. MARCAINE WITH EPINEPHRINE (MARCAINE WITH EPINEPHRINE /00879801/) [Suspect]
     Indication: NERVE BLOCK
     Dosage: 20 ML, INTRA-ARTICULAR 25 ML, WITH EPINEPHRINE 1:200,000
     Route: 014
     Dates: start: 20021125
  4. XYLOCAINE [Suspect]
     Indication: NERVE BLOCK
     Dosage: 2.5 ML
     Dates: start: 20021125
  5. PAINBUSTER PAIN PUMP [Suspect]
     Indication: MUSCULOSKELETAL PAIN
     Dates: start: 20021125
  6. KEFZOL [Concomitant]
  7. TORADOL [Concomitant]
  8. SOLU-MEDROL [Concomitant]

REACTIONS (9)
  - BONE CYST [None]
  - CHEST DISCOMFORT [None]
  - CHONDROLYSIS [None]
  - JOINT RANGE OF MOTION DECREASED [None]
  - MUSCLE SPASMS [None]
  - MUSCULOSKELETAL PAIN [None]
  - OSTEOARTHRITIS [None]
  - TACHYPNOEA [None]
  - TENOSYNOVITIS [None]
